FAERS Safety Report 7319193-1 (Version None)
Quarter: 2011Q1

REPORT INFORMATION
  Report Type: 
  Country: None (occurrence: None)
  Receive Date: 20110228
  Receipt Date: 20110214
  Transmission Date: 20110831
  Serious: Yes (Other)
  Sender: FDA-Public Use
  Company Number: PHHY2010DE15674

PATIENT
  Age: 69 Year
  Sex: Female

DRUGS (3)
  1. DIOVAN [Suspect]
     Indication: BLOOD PRESSURE SYSTOLIC INCREASED
     Dosage: 20 MG, QD
     Route: 048
     Dates: start: 20091109, end: 20100101
  2. DIOVAN [Suspect]
     Dosage: 40 MG, QD
     Route: 048
     Dates: start: 20100101, end: 20100308
  3. DIOVAN [Suspect]
     Dosage: 20 MG, QD
     Route: 048
     Dates: start: 20100308, end: 20100314

REACTIONS (4)
  - BLOOD PRESSURE DIASTOLIC DECREASED [None]
  - PARAESTHESIA [None]
  - EXTRASYSTOLES [None]
  - CONDITION AGGRAVATED [None]
